FAERS Safety Report 4606548-9 (Version None)
Quarter: 2005Q2

REPORT INFORMATION
  Report Type: 
  Country: None (occurrence: None)
  Receive Date: 20050223
  Receipt Date: 20040827
  Transmission Date: 20051028
  Serious: Yes (Hospitalization)
  Sender: FDA-Public Use
  Company Number: WAES 0408USA02191

PATIENT
  Age: 73 Year
  Sex: Male
  Weight: 90.7194 kg

DRUGS (9)
  1. ZOCOR [Suspect]
     Indication: HYPERCHOLESTEROLAEMIA
     Dosage: 80 MG/DAILY/PO
     Route: 048
     Dates: end: 20040822
  2. COUMADIN [Concomitant]
  3. HUMALOG [Concomitant]
  4. LANTUS [Concomitant]
  5. LASIX [Concomitant]
  6. PREVACID [Concomitant]
  7. TOPROL-XL [Concomitant]
  8. AMIODARONE [Concomitant]
  9. SPIRONOLACTONE [Concomitant]

REACTIONS (2)
  - RHABDOMYOLYSIS [None]
  - VENTRICULAR TACHYCARDIA [None]
